FAERS Safety Report 13160218 (Version 1)
Quarter: 2017Q1

REPORT INFORMATION
  Report Type: Report from Study
  Country: US (occurrence: US)
  Receive Date: 20170127
  Receipt Date: 20170127
  Transmission Date: 20170428
  Serious: Yes (Death)
  Sender: FDA-Public Use
  Company Number: US-ACTELION-A-US2017-148995

PATIENT
  Age: 3 Year
  Sex: Male

DRUGS (18)
  1. ZONISAMIDE. [Concomitant]
     Active Substance: ZONISAMIDE
     Dosage: 1 DOSE, BID
     Dates: start: 20160502
  2. ZOFRAN [Concomitant]
     Active Substance: ONDANSETRON HYDROCHLORIDE
     Dosage: 2 MG, PRN
     Dates: start: 20160502
  3. LEVOCARNITINE. [Concomitant]
     Active Substance: LEVOCARNITINE
     Dosage: 100 MG/ML, AS DIRECTED
     Dates: start: 20160502
  4. RANITIDINE. [Concomitant]
     Active Substance: RANITIDINE
     Dosage: 15 MG/ML, BID
     Dates: start: 20160502
  5. MORPHINE [Concomitant]
     Active Substance: MORPHINE
     Dosage: 1.5 MG/ML, PRN
     Dates: start: 20160502
  6. OMEPRAZOLE. [Concomitant]
     Active Substance: OMEPRAZOLE
     Dosage: 10 MG, BID
     Route: 048
     Dates: start: 20160502
  7. ONFI [Concomitant]
     Active Substance: CLOBAZAM
     Dosage: 2.5 MG/ML, TID
     Route: 048
     Dates: start: 20160502
  8. METHADONE [Concomitant]
     Active Substance: METHADONE HYDROCHLORIDE
     Dosage: 0.6 MG, Q8H
     Route: 048
     Dates: start: 20160502
  9. IBUPROFEN. [Concomitant]
     Active Substance: IBUPROFEN
     Dosage: 100 MG/ML, PRN
     Dates: start: 20160502
  10. BANOPHEN [Concomitant]
     Active Substance: DIPHENHYDRAMINE HYDROCHLORIDE
     Dosage: 12.5 MG/5 ML
     Route: 048
     Dates: start: 20160502
  11. MIRALAX [Concomitant]
     Active Substance: POLYETHYLENE GLYCOL 3350
     Dosage: 17 GM/DOSE
     Dates: start: 20160502
  12. VALPROIC ACID. [Concomitant]
     Active Substance: VALPROIC ACID
     Dosage: UNK, TID
     Route: 048
     Dates: start: 20160502
  13. DIAZEPAM. [Concomitant]
     Active Substance: DIAZEPAM
     Dosage: 2 MG, PRN
     Route: 054
     Dates: start: 20160502
  14. ZAVESCA [Suspect]
     Active Substance: MIGLUSTAT
     Indication: FABRY^S DISEASE
     Dosage: 100 MG, TID
     Route: 048
     Dates: start: 20160721, end: 20170119
  15. GABAPENTINE [Concomitant]
     Active Substance: GABAPENTIN
     Dosage: 250 MG/5 ML
     Dates: start: 20160502
  16. SODIUM BICARBONATE. [Concomitant]
     Active Substance: SODIUM BICARBONATE
     Dosage: 20 ML, QID
     Route: 048
     Dates: start: 20160502
  17. VALIUM [Concomitant]
     Active Substance: DIAZEPAM
     Dosage: 8 MG, Q6HRS
     Route: 048
     Dates: start: 20160502
  18. CALCIUM [Concomitant]
     Active Substance: CALCIUM
     Dosage: UNK, BID
     Dates: start: 20160502

REACTIONS (1)
  - Death [Fatal]

NARRATIVE: CASE EVENT DATE: 20170119
